FAERS Safety Report 8986828 (Version 1)
Quarter: 2012Q4

REPORT INFORMATION
  Report Type: 
  Country: US (occurrence: US)
  Receive Date: 20121226
  Receipt Date: 20121226
  Transmission Date: 20130627
  Serious: Yes (Hospitalization)
  Sender: FDA-Public Use
  Company Number: US-ELI_LILLY_AND_COMPANY-US200812005436

PATIENT
  Age: 76 None
  Sex: Female

DRUGS (19)
  1. CYMBALTA [Suspect]
     Indication: NEURALGIA
     Dosage: 30 mg, 2/D
     Dates: start: 200805, end: 200807
  2. CYMBALTA [Suspect]
     Dosage: 60 mg, 2/D
     Dates: start: 200807
  3. CYMBALTA [Suspect]
     Dosage: 30 mg, daily (1/D)
     Dates: start: 2008
  4. CYMBALTA [Suspect]
     Dosage: 60 mg, qd
     Dates: start: 2011
  5. CYMBALTA [Suspect]
     Dosage: 30 mg, qd
  6. EVISTA [Concomitant]
     Indication: OSTEOPOROSIS
     Dosage: 1 D/F, UNK
  7. ANTIHYPERTENSIVES [Concomitant]
     Dosage: 1 D/F, UNK
  8. OTHER ANALGESICS AND ANTIPYRETICS [Concomitant]
     Indication: PAIN MANAGEMENT
     Dosage: 1 D/F, UNK
     Route: 008
  9. SYNTHROID [Concomitant]
     Dosage: UNK, qd
  10. TIZANIDINE [Concomitant]
     Dosage: UNK, qd
  11. TRIAMTERENE [Concomitant]
     Dosage: UNK, qd
  12. FOSINOPRIL [Concomitant]
  13. ENDOCET [Concomitant]
  14. OXYCONTIN [Concomitant]
     Dosage: UNK, qd
  15. LORAZEPAM [Concomitant]
     Dosage: UNK, qd
  16. LIDODERM [Concomitant]
     Dosage: UNK, qd
  17. OMEPRAZOLE [Concomitant]
     Dosage: UNK, qd
  18. CRESTOR [Concomitant]
     Dosage: UNK, qd
  19. DOXYCYCLINE [Concomitant]

REACTIONS (22)
  - Faeces discoloured [Recovering/Resolving]
  - Dropped head syndrome [Unknown]
  - Pain [Unknown]
  - Urinary tract infection [Recovered/Resolved]
  - Bronchitis [Recovered/Resolved]
  - Stress [Unknown]
  - Gastric disorder [Recovering/Resolving]
  - Dysgeusia [Recovering/Resolving]
  - Flatulence [Recovering/Resolving]
  - Dizziness [Recovering/Resolving]
  - Diarrhoea [Recovering/Resolving]
  - Gastrointestinal pain [Unknown]
  - Flatulence [Unknown]
  - Diarrhoea [Unknown]
  - Abdominal discomfort [Unknown]
  - Paraesthesia [Unknown]
  - Rash [Unknown]
  - Pruritus [Unknown]
  - Rash [Unknown]
  - Drug withdrawal syndrome [Recovered/Resolved]
  - Dizziness [Unknown]
  - Spinal fusion surgery [Unknown]
